FAERS Safety Report 9218841 (Version 1)
Quarter: 2013Q2

REPORT INFORMATION
  Report Type: Spontaneous
  Country: US (occurrence: None)
  Receive Date: 20130405
  Receipt Date: 20130405
  Transmission Date: 20140414
  Serious: Yes (Other)
  Sender: FDA-Public Use
  Company Number: None

PATIENT
  Age: 29 Year
  Sex: Female
  Weight: 131.09 kg

DRUGS (2)
  1. NUVARING [Suspect]
     Indication: CONTRACEPTION
     Dosage: 1 DOSE 2 WEEKS VAG
     Route: 067
     Dates: start: 20130307, end: 20130320
  2. NUVARING [Suspect]
     Indication: UTERINE LEIOMYOMA
     Dosage: 1 DOSE 2 WEEKS VAG
     Route: 067
     Dates: start: 20130307, end: 20130320

REACTIONS (2)
  - Haemorrhoids [None]
  - Melaena [None]
